FAERS Safety Report 23522564 (Version 1)
Quarter: 2024Q1

REPORT INFORMATION
  Report Type: Spontaneous
  Country: CA (occurrence: CA)
  Receive Date: 20240214
  Receipt Date: 20240214
  Transmission Date: 20240409
  Serious: Yes (Hospitalization, Other)
  Sender: FDA-Public Use
  Company Number: CA-BAXTER-2024BAX012604

PATIENT
  Sex: Female

DRUGS (2)
  1. DIANEAL LOW CALCIUM PERITONEAL DIALYSIS SOLUTION WITH DEXTROSE [Suspect]
     Active Substance: CALCIUM CHLORIDE\DEXTROSE\MAGNESIUM CHLORIDE\SODIUM CHLORIDE\SODIUM LACTATE
     Route: 033
  2. EXTRANEAL [Suspect]
     Active Substance: CALCIUM CHLORIDE\ICODEXTRIN\MAGNESIUM CHLORIDE\SODIUM CHLORIDE\SODIUM LACTATE
     Dosage: 1 TWIN BAG (TB) PER DAY AND 1 BAG OF CYCLER SOLUTION PER NIGHT
     Route: 033

REACTIONS (3)
  - Oral fungal infection [Recovered/Resolved]
  - Pharyngitis [Recovered/Resolved]
  - Peritonitis [Recovered/Resolved]
